FAERS Safety Report 9628508 (Version 1)
Quarter: 2013Q4

REPORT INFORMATION
  Report Type: Spontaneous
  Country: US (occurrence: US)
  Receive Date: 20131017
  Receipt Date: 20131017
  Transmission Date: 20140711
  Serious: No
  Sender: FDA-Public Use
  Company Number: US-PFIZER INC-2013293521

PATIENT
  Age: 35 Year
  Sex: Female
  Weight: 70.3 kg

DRUGS (1)
  1. DEPO PROVERA [Suspect]
     Indication: CONTRACEPTION
     Dosage: UNK

REACTIONS (6)
  - Drug administered at inappropriate site [Unknown]
  - Metrorrhagia [Unknown]
  - Menstrual disorder [Unknown]
  - Dizziness [Unknown]
  - Hypoaesthesia [Unknown]
  - Headache [Unknown]
